FAERS Safety Report 9481846 (Version 2)
Quarter: 2015Q2

REPORT INFORMATION
  Report Type: Report from Study
  Country: GB (occurrence: GB)
  Receive Date: 20130828
  Receipt Date: 20150513
  Transmission Date: 20150821
  Serious: Yes (Hospitalization)
  Sender: FDA-Public Use
  Company Number: GB-ROCHE-1264431

PATIENT
  Age: 70 Year
  Sex: Male
  Weight: 92.9 kg

DRUGS (13)
  1. METFORMIN [Concomitant]
     Active Substance: METFORMIN HYDROCHLORIDE
     Route: 048
     Dates: start: 2009
  2. BISOPROLOL [Concomitant]
     Active Substance: BISOPROLOL
     Route: 048
     Dates: start: 201304
  3. CAPECITABINE. [Suspect]
     Active Substance: CAPECITABINE
     Indication: GASTRIC CANCER
     Dosage: ACTUAL DOSE AT MOST RECENT ADMINISTRATION: 2500 MG?DATE OF MOST RECENT ADMINISTRATION: 07/JUL/2013
     Route: 048
     Dates: start: 20130522
  4. LANSOPRAZOLE. [Concomitant]
     Active Substance: LANSOPRAZOLE
     Dosage: INCREASED FROM ONCE A DAY
     Route: 048
     Dates: start: 20130713
  5. EPIRUBICIN [Suspect]
     Active Substance: EPIRUBICIN
     Indication: GASTRIC CANCER
     Dosage: ACTUAL DOSE AT MOST RECENT ADMINISTRATION: 104 MG?DATE OF MOST RECENT ADMINISTRATION: 03/JUL/2013
     Route: 042
     Dates: start: 20130522
  6. ISOSORBIDE MONONITRATE. [Concomitant]
     Active Substance: ISOSORBIDE MONONITRATE
     Route: 048
     Dates: start: 2001
  7. BEVACIZUMAB [Suspect]
     Active Substance: BEVACIZUMAB
     Indication: GASTRIC CANCER
     Dosage: ACTUAL DOSE AT MOST RECENT ADMINISTRATION: 700 MG?DATE OF MOST RECENT ADMINISTRATION: 03/JUL/2013
     Route: 042
     Dates: start: 20130522
  8. BIOTENE MOUTHWASH [Concomitant]
     Route: 048
     Dates: start: 20130709
  9. CISPLATIN. [Suspect]
     Active Substance: CISPLATIN
     Indication: GASTRIC CANCER
     Dosage: ACTUAL DOSE AT MOST RECENT ADMINISTRATION: 125 MG?DATE OF MOST RECENT ADMINISTRATION: 03/JUL/2013
     Route: 042
     Dates: start: 20130522
  10. CLOPIDOGREL [Concomitant]
     Active Substance: CLOPIDOGREL BISULFATE
     Route: 048
     Dates: start: 201303
  11. TRANDOLAPRIL. [Concomitant]
     Active Substance: TRANDOLAPRIL
     Route: 048
     Dates: start: 2001
  12. GLIPIZIDE. [Concomitant]
     Active Substance: GLIPIZIDE
     Route: 048
     Dates: start: 2009
  13. ATORVASTATIN [Concomitant]
     Active Substance: ATORVASTATIN
     Route: 048
     Dates: start: 2001

REACTIONS (1)
  - Dysphagia [Recovered/Resolved]

NARRATIVE: CASE EVENT DATE: 20130705
